FAERS Safety Report 13192603 (Version 1)
Quarter: 2017Q1

REPORT INFORMATION
  Report Type: Spontaneous
  Country: US (occurrence: US)
  Receive Date: 20170207
  Receipt Date: 20170207
  Transmission Date: 20170428
  Serious: Yes (Disabling)
  Sender: FDA-Public Use
  Company Number: None

PATIENT
  Age: 69 Year
  Sex: Female
  Weight: 60.78 kg

DRUGS (18)
  1. TECFIDERA [Suspect]
     Active Substance: DIMETHYL FUMARATE
     Indication: MULTIPLE SCLEROSIS
     Route: 048
  2. TRIAMCINOLONE [Concomitant]
     Active Substance: TRIAMCINOLONE
  3. VITAMIN B12 [Concomitant]
     Active Substance: CYANOCOBALAMIN
  4. CEPHALEXIN. [Concomitant]
     Active Substance: CEPHALEXIN
  5. TYLENOL EXTRA STRENGTH [Concomitant]
     Active Substance: ACETAMINOPHEN
  6. VITAMIN A [Concomitant]
     Active Substance: VITAMIN A
  7. PROVIGIL [Concomitant]
     Active Substance: MODAFINIL
  8. METOPROLOL. [Concomitant]
     Active Substance: METOPROLOL
  9. BENADRYL [Concomitant]
     Active Substance: DIPHENHYDRAMINE HYDROCHLORIDE
  10. WARFARIN [Concomitant]
     Active Substance: WARFARIN
  11. BACLOFEN. [Concomitant]
     Active Substance: BACLOFEN
  12. VITAMIN C [Concomitant]
     Active Substance: ASCORBIC ACID
  13. FLUOXETINE [Concomitant]
     Active Substance: FLUOXETINE HYDROCHLORIDE
  14. MYRBETRIQ [Concomitant]
     Active Substance: MIRABEGRON
  15. VITAMIN E [Concomitant]
     Active Substance: .ALPHA.-TOCOPHEROL
  16. AMPYRA [Concomitant]
     Active Substance: DALFAMPRIDINE
  17. L-THYROXINE [Concomitant]
     Active Substance: LEVOTHYROXINE
  18. ZINC. [Concomitant]
     Active Substance: ZINC

REACTIONS (2)
  - Abdominal discomfort [None]
  - Vomiting [None]

NARRATIVE: CASE EVENT DATE: 20170105
